FAERS Safety Report 6188793-7 (Version None)
Quarter: 2009Q2

REPORT INFORMATION
  Report Type: 
  Country: None (occurrence: None)
  Receive Date: 20090511
  Receipt Date: 20090511
  Transmission Date: 20091009
  Serious: Yes (Life-Threatening, Other)
  Sender: FDA-Public Use
  Company Number: None

PATIENT
  Sex: Female
  Weight: 72.5755 kg

DRUGS (1)
  1. DIGOXIN [Suspect]
     Indication: ATRIAL FIBRILLATION
     Dosage: ONE TABLET DAILY PO
     Route: 048
     Dates: start: 20001213, end: 20090510

REACTIONS (6)
  - HEART RATE IRREGULAR [None]
  - INCORRECT DOSE ADMINISTERED [None]
  - NOCTURIA [None]
  - ROAD TRAFFIC ACCIDENT [None]
  - VISION BLURRED [None]
  - VISUAL FIELD DEFECT [None]
